FAERS Safety Report 9280183 (Version 2)
Quarter: 2014Q2

REPORT INFORMATION
  Report Type: Spontaneous
  Country: KR (occurrence: None)
  Receive Date: 20120914
  Receipt Date: 20140618
  Transmission Date: 20141212
  Serious: Yes (Death, Hospitalization)
  Sender: FDA-Public Use
  Company Number: KR-JNJFOC-20110207551

PATIENT
  Age: 65 Year
  Sex: Male
  Weight: 68 kg

DRUGS (29)
  1. DECITABINE [Suspect]
     Indication: MYELODYSPLASTIC SYNDROME
     Route: 042
     Dates: start: 20110207, end: 20110211
  2. DICODE SR [Concomitant]
  3. ALMAGATE (ALMAGATE) [Concomitant]
  4. ALLELOCK [Concomitant]
  5. DAPSONE [Concomitant]
  6. CIPROBAY [Concomitant]
  7. ZOVIRAX [Concomitant]
  8. SPORANOX [Concomitant]
  9. ASPIRIN (ACETYLSALICYLIC ACID) [Concomitant]
  10. LIPITOR (ATORVASTATIN CALCIUM) [Concomitant]
  11. TRITACE [Concomitant]
  12. NEBILET [Concomitant]
  13. METHYLON [Concomitant]
  14. CIPRO [Concomitant]
  15. PARIET [Concomitant]
  16. CEFTRIAXONE (CEFTRIAXONE) [Concomitant]
  17. FLASINYL (METRONIDAZOLE) [Concomitant]
  18. TRANEXAMIC ACID (TRANEXAMIC ACID) [Concomitant]
  19. PROTON PUMP INHIBITOR [Concomitant]
  20. ANTIDIABETIC [Concomitant]
  21. UNKNOWN MEDICAL [Concomitant]
  22. TAZOBACTAM [Concomitant]
  23. JURNISTA [Concomitant]
  24. ULTRACET [Concomitant]
  25. DOBUTAMINE HYDROCHLORIDE [Concomitant]
  26. DOPAMINE [Concomitant]
  27. LASIX (FUROSEMIDE) [Concomitant]
  28. FURIX (FUROSEMIDE) [Concomitant]
  29. CITOPCIN (CIPROFLOXACIN HYDROCHLORIDE) [Concomitant]

REACTIONS (10)
  - Diarrhoea [None]
  - Hypophagia [None]
  - Dyspnoea [None]
  - Hypoglycaemia [None]
  - Cardiac failure [None]
  - Stress cardiomyopathy [None]
  - Febrile neutropenia [None]
  - Myocardial infarction [None]
  - Acute myeloid leukaemia [None]
  - Azotaemia [None]
